FAERS Safety Report 24059207 (Version 3)
Quarter: 2025Q1

REPORT INFORMATION
  Report Type: Report from Study
  Country: BR (occurrence: BR)
  Receive Date: 20240708
  Receipt Date: 20250131
  Transmission Date: 20250409
  Serious: No
  Sender: TAKEDA
  Company Number: BR-TAKEDA-2023TUS090303

PATIENT
  Age: 7 Year
  Sex: Female
  Weight: 23.129 kg

DRUGS (15)
  1. TEDUGLUTIDE [Suspect]
     Active Substance: TEDUGLUTIDE
     Indication: Short-bowel syndrome
  2. TEDUGLUTIDE [Suspect]
     Active Substance: TEDUGLUTIDE
     Indication: Functional gastrointestinal disorder
     Dosage: 0.05 MILLIGRAM/KILOGRAM, QD
  3. TEDUGLUTIDE [Suspect]
     Active Substance: TEDUGLUTIDE
  4. TEDUGLUTIDE [Suspect]
     Active Substance: TEDUGLUTIDE
     Dosage: UNK, UNK, QD
  5. TAUROLIDINE [Concomitant]
     Active Substance: TAUROLIDINE
     Dosage: 2 DOSAGE FORM, MONTHLY
  6. NYSTATIN [Concomitant]
     Active Substance: NYSTATIN
     Dosage: 4 DOSAGE FORM, MONTHLY
  7. SODIUM CITRATE [Concomitant]
     Active Substance: SODIUM CITRATE
     Dosage: 1 INTERNATIONAL UNIT, MONTHLY
  8. DIPYRONE [Concomitant]
     Active Substance: DIPYRONE
     Dosage: 1 INTERNATIONAL UNIT, MONTHLY
  9. HEPARIN [Concomitant]
     Active Substance: HEPARIN SODIUM
     Dosage: 1 INTERNATIONAL UNIT, MONTHLY
  10. METRONIDAZOLE [Concomitant]
     Active Substance: METRONIDAZOLE
     Dosage: 1 INTERNATIONAL UNIT, MONTHLY
  11. SULFAMETHOXAZOLE\TRIMETHOPRIM [Concomitant]
     Active Substance: SULFAMETHOXAZOLE\TRIMETHOPRIM
     Dosage: 1 INTERNATIONAL UNIT, MONTHLY
  12. ACETAMINOPHEN [Concomitant]
     Active Substance: ACETAMINOPHEN
     Dosage: 1 INTERNATIONAL UNIT, MONTHLY
  13. SIMETHICONE (DIMETHICONE) [Concomitant]
     Active Substance: DIMETHICONE
     Dosage: 1 INTERNATIONAL UNIT, MONTHLY
  14. Fortinil [Concomitant]
     Dosage: 8 INTERNATIONAL UNIT, MONTHLY
  15. SALINE [Concomitant]
     Active Substance: SODIUM CHLORIDE
     Dosage: 30 INTERNATIONAL UNIT, MONTHLY

REACTIONS (13)
  - Abdominal discomfort [Unknown]
  - Abdominal pain lower [Unknown]
  - Abnormal faeces [Unknown]
  - Weight increased [Unknown]
  - Application site pain [Unknown]
  - Multiple allergies [Unknown]
  - Malaise [Unknown]
  - Drug intolerance [Unknown]
  - Product use in unapproved indication [Unknown]
  - Allergic sinusitis [Unknown]
  - Influenza [Recovering/Resolving]
  - Cough [Unknown]
  - Nasopharyngitis [Unknown]

NARRATIVE: CASE EVENT DATE: 20240414
